FAERS Safety Report 15897408 (Version 2)
Quarter: 2019Q1

REPORT INFORMATION
  Report Type: Spontaneous
  Country: NL (occurrence: NL)
  Receive Date: 20190131
  Receipt Date: 20190226
  Transmission Date: 20190417
  Serious: Yes (Life-Threatening, Other)
  Sender: FDA-Public Use
  Company Number: PHHY2019NL019162

PATIENT
  Sex: Male
  Weight: 86 kg

DRUGS (8)
  1. RYDAPT [Suspect]
     Active Substance: MIDOSTAURIN
     Dosage: 50 MG, 2DD
     Route: 048
     Dates: start: 20190125
  2. VALACICLOVIR [Concomitant]
     Active Substance: VALACYCLOVIR HYDROCHLORIDE
     Indication: PRODUCT USED FOR UNKNOWN INDICATION
     Dosage: 500 MG, 2DD
     Route: 065
  3. PARACETAMOL [Concomitant]
     Active Substance: ACETAMINOPHEN
     Indication: PRODUCT USED FOR UNKNOWN INDICATION
     Dosage: UNK UNK, PRN
     Route: 065
  4. FENETICILLINA [Concomitant]
     Indication: PRODUCT USED FOR UNKNOWN INDICATION
     Dosage: 250 MG, 4DD
     Route: 065
  5. RYDAPT [Suspect]
     Active Substance: MIDOSTAURIN
     Indication: ACUTE MYELOID LEUKAEMIA
     Dosage: 50 MG, 2DD
     Route: 048
     Dates: start: 20181213, end: 20181217
  6. METOCLOPRAMIDE. [Concomitant]
     Active Substance: METOCLOPRAMIDE
     Indication: PRODUCT USED FOR UNKNOWN INDICATION
     Dosage: 10 MG, PRN
     Route: 065
  7. CIPROFLOXACIN. [Concomitant]
     Active Substance: CIPROFLOXACIN
     Indication: PRODUCT USED FOR UNKNOWN INDICATION
     Dosage: 500 MG, 2DD
     Route: 048
  8. RYDAPT [Suspect]
     Active Substance: MIDOSTAURIN
     Dosage: 25 MG, 2DD
     Route: 048
     Dates: start: 20190118

REACTIONS (7)
  - Myocarditis [Recovered/Resolved]
  - Transient ischaemic attack [Unknown]
  - Pain [Recovered/Resolved]
  - Myocardial infarction [Unknown]
  - Pericarditis [Unknown]
  - Dyspnoea [Recovered/Resolved]
  - Thrombosis [Recovered/Resolved]

NARRATIVE: CASE EVENT DATE: 20181217
